FAERS Safety Report 7220744-6 (Version None)
Quarter: 2011Q1

REPORT INFORMATION
  Report Type: 
  Country: None (occurrence: None)
  Receive Date: 20110111
  Receipt Date: 20110110
  Transmission Date: 20110831
  Serious: Yes (Other)
  Sender: FDA-Public Use
  Company Number: US-AMGEN-USASP2010006366

PATIENT

DRUGS (20)
  1. RITUXIMAB [Concomitant]
  2. COSOPT [Concomitant]
  3. ADVAIR HFA [Concomitant]
  4. AMIODARONE HCL [Concomitant]
     Dosage: UNK UNK, QD
     Route: 048
  5. KLOR-CON M20 [Concomitant]
     Dosage: 20 MEQ, 2 TIMES/WK
     Route: 048
  6. PRILOSEC [Concomitant]
     Dosage: 20 MG, QD
     Route: 048
  7. SLOW MAG [Concomitant]
     Dosage: 64 MG, UNK
     Route: 048
  8. IMMUNE GLOBULIN NOS [Concomitant]
  9. ATROPINE SULFATE [Concomitant]
  10. PRED FORTE [Concomitant]
  11. COUMADIN [Concomitant]
     Dosage: 2 MG, UNK
     Route: 048
  12. CORTICOSTEROIDS [Concomitant]
  13. SYNTHROID [Concomitant]
     Dosage: 100 A?G, QD
     Route: 048
  14. ZOCOR [Concomitant]
     Dosage: 40 MG, UNK
     Route: 048
  15. COREG [Concomitant]
     Dosage: 3.125 MG, BID
     Route: 048
  16. TRAVATAN [Concomitant]
  17. PROCHLORPERAZINE MALEATE [Concomitant]
     Dosage: 6 MG, PRN
     Route: 048
  18. PREDNISONE [Concomitant]
     Dosage: 1 MG, UNK
     Route: 048
  19. BUMETANIDE [Concomitant]
     Dosage: 0.5 MG, 2 TIMES/WK
  20. NPLATE [Suspect]
     Indication: IDIOPATHIC THROMBOCYTOPENIC PURPURA
     Dosage: UNK
     Dates: start: 20100515

REACTIONS (10)
  - SKIN DISORDER [None]
  - EYELID PTOSIS [None]
  - ECCHYMOSIS [None]
  - ARTHRALGIA [None]
  - CHRONIC MYELOID LEUKAEMIA [None]
  - WHEEZING [None]
  - THROMBOCYTOPENIA [None]
  - CHROMOSOME ANALYSIS ABNORMAL [None]
  - OEDEMA PERIPHERAL [None]
  - ABDOMINAL PAIN [None]
